FAERS Safety Report 16175588 (Version 1)
Quarter: 2019Q2

REPORT INFORMATION
  Report Type: Spontaneous
  Country: US (occurrence: US)
  Receive Date: 20190409
  Receipt Date: 20190409
  Transmission Date: 20190711
  Serious: No
  Sender: FDA-Public Use
  Company Number: US-MIKART, INC.-2065574

PATIENT
  Age: 62 Year
  Sex: Female
  Weight: 74.55 kg

DRUGS (4)
  1. EMBEDA [Concomitant]
     Active Substance: MORPHINE SULFATE\NALTREXONE HYDROCHLORIDE
     Route: 048
     Dates: start: 201802
  2. STEROID INJECTIONS [Concomitant]
     Active Substance: UNSPECIFIED INGREDIENT
  3. HYDROCODONE BITARTRATE AND ACETAMINOPHEN [Suspect]
     Active Substance: ACETAMINOPHEN\HYDROCODONE BITARTRATE
     Route: 048
  4. OXYCONTIN [Concomitant]
     Active Substance: OXYCODONE HYDROCHLORIDE
     Route: 048

REACTIONS (1)
  - Drug ineffective [None]
